FAERS Safety Report 5364678-0 (Version None)
Quarter: 2007Q2

REPORT INFORMATION
  Report Type: 
  Country: None (occurrence: None)
  Receive Date: 20070621
  Receipt Date: 20070613
  Transmission Date: 20071010
  Serious: Yes (Other)
  Sender: FDA-Public Use
  Company Number: PHFR2007GB01821

PATIENT
  Age: 22 Year
  Sex: Male

DRUGS (1)
  1. CLOZARIL [Suspect]
     Indication: SCHIZOPHRENIA
     Route: 048
     Dates: start: 20070516

REACTIONS (14)
  - ASPARTATE AMINOTRANSFERASE INCREASED [None]
  - BLOOD BILIRUBIN INCREASED [None]
  - BLOOD CREATININE INCREASED [None]
  - BLOOD PRESSURE DECREASED [None]
  - BLOOD UREA INCREASED [None]
  - C-REACTIVE PROTEIN INCREASED [None]
  - DIZZINESS [None]
  - EATING DISORDER [None]
  - ELECTROCARDIOGRAM ABNORMAL [None]
  - HAEMOGLOBIN DECREASED [None]
  - PALLOR [None]
  - PLATELET COUNT INCREASED [None]
  - SINUS TACHYCARDIA [None]
  - TACHYCARDIA [None]
